FAERS Safety Report 7584709-7 (Version None)
Quarter: 2011Q2

REPORT INFORMATION
  Report Type: 
  Country: None (occurrence: None)
  Receive Date: 20110630
  Receipt Date: 20110617
  Transmission Date: 20111010
  Serious: Yes (Hospitalization)
  Sender: FDA-Public Use
  Company Number: PHHY2011JP54726

PATIENT
  Sex: Male
  Weight: 60 kg

DRUGS (69)
  1. PREDNISOLONE [Suspect]
     Dosage: 20 MG, DAILY
     Route: 048
     Dates: start: 20100608, end: 20100613
  2. SLOW-K [Concomitant]
     Dosage: 1200 MG, UNK
     Route: 048
     Dates: end: 20101014
  3. URSO 250 [Concomitant]
     Dosage: 1200 MG, UNK
     Route: 048
     Dates: start: 20100510
  4. URSO 250 [Concomitant]
     Dosage: 600 MG, UNK
     Route: 048
  5. LANSOPRAZOLE [Concomitant]
     Dosage: 30 MG, UNK
     Route: 048
     Dates: start: 20100510
  6. PREDNISOLONE [Concomitant]
     Dosage: 4 MG, UNK
     Route: 048
  7. FOLIC ACID [Concomitant]
     Dosage: 10 MG, UNK
     Route: 048
  8. TACROLIMUS [Concomitant]
     Dosage: 0.5 MG, UNK
     Route: 048
     Dates: start: 20100517
  9. TACROLIMUS [Concomitant]
     Dosage: 1 MG, UNK
     Route: 048
  10. CLARITHROMYCIN [Concomitant]
     Dosage: 400 MG, UNK
     Route: 048
     Dates: end: 20100620
  11. SHAKUYAKUKANZOUTOU [Concomitant]
  12. PREDNISOLONE [Suspect]
     Dosage: 5 MG, DAILY
     Route: 048
     Dates: start: 20100817, end: 20101014
  13. URSO 250 [Concomitant]
     Dosage: 600 MG, UNK
     Route: 048
  14. LANSOPRAZOLE [Concomitant]
     Dosage: 30 MG, UNK
     Route: 048
  15. PREDNISOLONE [Concomitant]
     Dosage: 4 MG, UNK
     Route: 048
  16. FOLIC ACID [Concomitant]
     Dosage: 5 MG, UNK
     Route: 048
  17. MYCOSYST [Concomitant]
     Dosage: 400 MG, UNK
     Route: 048
  18. MYCOSYST [Concomitant]
     Dosage: 200 MG, UNK
     Route: 048
     Dates: end: 20100816
  19. BACTRIM [Concomitant]
     Dosage: 2 DF, UNK
     Route: 048
     Dates: end: 20100615
  20. NEOPHAGEN [Concomitant]
  21. PREDNISOLONE [Suspect]
     Dosage: 40 MG, DAILY
     Route: 048
     Dates: start: 20100601, end: 20100601
  22. PREDNISOLONE [Suspect]
     Dosage: 15 MG, DAILY
     Route: 048
     Dates: start: 20100628, end: 20100719
  23. URSO 250 [Concomitant]
     Dosage: 1200 MG, UNK
     Route: 048
  24. FOLIC ACID [Concomitant]
     Dosage: 10 MG, UNK
     Route: 048
  25. TACROLIMUS [Concomitant]
     Dosage: 0.5 MG, UNK
     Route: 048
     Dates: end: 20101014
  26. GLYCYRON [Concomitant]
     Dosage: 12 DF, UNK
     Route: 048
  27. GLYCYRON [Concomitant]
     Dosage: 12 DF, UNK
     Route: 048
  28. LOXOPROFEN [Concomitant]
  29. EXJADE [Suspect]
     Dosage: 500 MG, DAILY
     Route: 048
     Dates: start: 20100628, end: 20101012
  30. PREDNISOLONE [Suspect]
     Dosage: 17.5 MG, DAILY
     Route: 048
     Dates: start: 20100614, end: 20100627
  31. URSO 250 [Concomitant]
     Dosage: 300 UNK, UNK
     Route: 048
     Dates: end: 20101014
  32. LANSOPRAZOLE [Concomitant]
     Dosage: 30 MG, UNK
     Route: 048
  33. FOLIC ACID [Concomitant]
     Dosage: 5 MG, UNK
     Route: 048
  34. CLARITHROMYCIN [Concomitant]
     Dosage: 800 MG, UNK
     Route: 048
  35. PREDNISOLONE [Suspect]
     Dosage: 20 MG, DAILY
     Route: 048
     Dates: start: 20100602, end: 20100606
  36. PREDNISOLONE [Concomitant]
     Dosage: 3 MG, UNK
     Route: 048
  37. FOLIC ACID [Concomitant]
     Dosage: 10 MG, UNK
     Route: 048
     Dates: start: 20100510
  38. TACROLIMUS [Concomitant]
     Dosage: 0.5 MG, UNK
     Route: 048
  39. GLYCYRON [Concomitant]
     Dosage: 3 DF, UNK
     Route: 048
     Dates: end: 20101014
  40. BACTRIM [Concomitant]
     Dosage: 2 DF, UNK
     Route: 048
  41. PREDNISOLONE [Suspect]
     Dosage: 40 MG, DAILY
     Route: 048
     Dates: start: 20100607, end: 20100607
  42. PREDNISOLONE [Suspect]
     Dosage: 10 MG, DAILY
     Route: 048
     Dates: start: 20100720, end: 20100816
  43. DESFERAL [Concomitant]
     Indication: IRON OVERLOAD
     Dosage: 1000 MG, UNK
     Route: 030
  44. LANSOPRAZOLE [Concomitant]
     Dosage: 15 MG, UNK
     Route: 048
  45. GLYCYRON [Concomitant]
     Dosage: 6 DF, UNK
     Route: 048
  46. MYCOSYST [Concomitant]
     Dosage: 200 MG, UNK
     Route: 048
     Dates: start: 20100601
  47. BACTRIM [Concomitant]
     Dosage: 2 DF, UNK
     Route: 048
     Dates: start: 20100601
  48. FUROSEMIDE [Concomitant]
  49. EXJADE [Suspect]
     Indication: IRON OVERLOAD
     Dosage: 1000 MG, DAILY
     Route: 048
     Dates: start: 20100510, end: 20100627
  50. DESFERAL [Concomitant]
     Dosage: 2000 MG,
     Route: 030
     Dates: end: 20090926
  51. SLOW-K [Concomitant]
     Dosage: 2400 MG, UNK
     Route: 048
     Dates: start: 20100510
  52. URSO 250 [Concomitant]
     Dosage: 1200 MG, UNK
     Route: 048
  53. LANSOPRAZOLE [Concomitant]
     Dosage: 15 MG, UNK
     Route: 048
  54. LANSOPRAZOLE [Concomitant]
     Dosage: 15 MG, UNK
     Route: 048
     Dates: end: 20101014
  55. FOLIC ACID [Concomitant]
     Dosage: 5 MG, UNK
     Route: 048
     Dates: end: 20101014
  56. GLYCYRON [Concomitant]
     Dosage: 6 DF, UNK
     Route: 048
  57. CLARITHROMYCIN [Concomitant]
     Dosage: 400 MG, UNK
     Route: 048
     Dates: start: 20100601
  58. RED BLOOD CELLS, CONCENTRATED [Concomitant]
     Dosage: 4 TO 6 UNITS EVERY MONTH
     Dates: end: 20090506
  59. PLATELETS [Concomitant]
     Dosage: 20 UNITS EVERY 3 DAYS
     Dates: end: 20090520
  60. PREDNISOLONE [Suspect]
     Dosage: 20 MG, DAILY
     Route: 048
     Dates: start: 20100517, end: 20100531
  61. PREDNISOLONE [Concomitant]
     Dosage: 8 MG, UNK
     Route: 048
     Dates: start: 20100510
  62. PREDNISOLONE [Concomitant]
     Dosage: 2 MG, UNK
     Route: 048
     Dates: end: 20101014
  63. TACROLIMUS [Concomitant]
     Dosage: 1 MG, UNK
     Route: 048
  64. GLYCYRON [Concomitant]
     Dosage: 6 DF, UNK
     Route: 048
     Dates: start: 20100524
  65. RINDERON-VG [Concomitant]
  66. HIRUDOID [Concomitant]
  67. ZOLPIDEM [Concomitant]
  68. RULID [Concomitant]
  69. ACUATIM [Concomitant]

REACTIONS (3)
  - LYMPHOCYTE COUNT DECREASED [None]
  - LIVER DISORDER [None]
  - WHITE BLOOD CELL COUNT INCREASED [None]
